FAERS Safety Report 6848301-1 (Version None)
Quarter: 2010Q3

REPORT INFORMATION
  Report Type: 
  Country: None (occurrence: None)
  Receive Date: 20100716
  Receipt Date: 20100707
  Transmission Date: 20110219
  Serious: Yes (Hospitalization)
  Sender: FDA-Public Use
  Company Number: JP-ROCHE-713710

PATIENT
  Sex: Female

DRUGS (2)
  1. HERCEPTIN [Suspect]
     Indication: BREAST CANCER
     Route: 041
     Dates: start: 20100223, end: 20100223
  2. HERCEPTIN [Suspect]
     Route: 041
     Dates: start: 20100317, end: 20100519

REACTIONS (1)
  - HEPATIC FUNCTION ABNORMAL [None]
